FAERS Safety Report 8343181-X (Version None)
Quarter: 2012Q2

REPORT INFORMATION
  Report Type: 
  Country: None (occurrence: None)
  Receive Date: 20120508
  Receipt Date: 20120430
  Transmission Date: 20120825
  Serious: Yes (Hospitalization)
  Sender: FDA-Public Use
  Company Number: US-BAYER-2012-003163

PATIENT
  Age: 45 Year
  Sex: Female
  Weight: 74.83 kg

DRUGS (2)
  1. YAZ [Suspect]
     Dosage: UNK
     Dates: start: 20070701, end: 20080101
  2. XANAX [Concomitant]
     Indication: ANXIETY

REACTIONS (3)
  - PAIN [None]
  - PULMONARY EMBOLISM [None]
  - FEAR OF DISEASE [None]
